FAERS Safety Report 9005224 (Version 1)
Quarter: 2013Q1

REPORT INFORMATION
  Report Type: Spontaneous
  Country: US (occurrence: US)
  Receive Date: 20130108
  Receipt Date: 20130108
  Transmission Date: 20140127
  Serious: Yes (Death)
  Sender: FDA-Public Use
  Company Number: US-PFIZER INC-2013004045

PATIENT
  Age: 32 Year
  Sex: Male

DRUGS (6)
  1. OXYCODONE HYDROCHLORIDE [Suspect]
     Dosage: UNK
     Route: 048
  2. TRAZODONE [Suspect]
     Dosage: UNK
     Route: 048
  3. DOXYLAMINE [Suspect]
     Dosage: UNK
     Route: 048
  4. MIRTAZAPINE [Suspect]
     Dosage: UNK
     Route: 048
  5. CITALOPRAM [Suspect]
     Dosage: UNK
     Route: 048
  6. ACETAMINOPHEN [Suspect]
     Dosage: UNK
     Route: 048

REACTIONS (1)
  - Death [Fatal]
